FAERS Safety Report 8248053-7 (Version None)
Quarter: 2012Q1

REPORT INFORMATION
  Report Type: 
  Country: None (occurrence: None)
  Receive Date: 20120330
  Receipt Date: 20120325
  Transmission Date: 20120608
  Serious: No
  Sender: FDA-Public Use
  Company Number: US-BAYER-2012-030780

PATIENT

DRUGS (3)
  1. IBUPROFEN [Concomitant]
     Indication: PAIN
  2. NAPROXEN SODIUM [Concomitant]
     Indication: PAIN
     Route: 048
  3. ALEVE (CAPLET) [Suspect]
     Indication: PAIN
     Route: 048

REACTIONS (1)
  - PAIN [None]
